FAERS Safety Report 10166809 (Version 3)
Quarter: 2014Q3

REPORT INFORMATION
  Report Type: Spontaneous
  Country: US (occurrence: None)
  Receive Date: 20140508
  Receipt Date: 20140714
  Transmission Date: 20150326
  Serious: Yes (Hospitalization)
  Sender: FDA-Public Use
  Company Number: UTC-048198

PATIENT
  Age: 37 Year
  Sex: Male
  Weight: 95.3 kg

DRUGS (3)
  1. TRACLEER [Concomitant]
     Active Substance: BOSENTAN\BOSENTAN MONOHYDRATE
  2. TYVASO [Suspect]
     Active Substance: TREPROSTINIL
     Indication: PULMONARY ARTERIAL HYPERTENSION
     Dosage: 18-54 MCG (4 IN 1 D), INHALATION
     Route: 055
     Dates: start: 20131216
  3. WARFARIN (WARFARIN) [Concomitant]
     Active Substance: WARFARIN

REACTIONS (4)
  - Haemoptysis [None]
  - Chest pain [None]
  - Cough [None]
  - Bronchitis [None]

NARRATIVE: CASE EVENT DATE: 201404
